FAERS Safety Report 9502667 (Version 2)
Quarter: 2013Q4

REPORT INFORMATION
  Report Type: Report from Study
  Country: ES (occurrence: ES)
  Receive Date: 20130906
  Receipt Date: 20131011
  Transmission Date: 20140711
  Serious: Yes (Life-Threatening, Hospitalization)
  Sender: FDA-Public Use
  Company Number: ES-BAYER-2012-108497

PATIENT
  Age: 66 Year
  Sex: Male
  Weight: 66 kg

DRUGS (7)
  1. REGORAFENIB [Suspect]
     Indication: COLORECTAL CANCER METASTATIC
     Dosage: 160 MG, QD ON DAY 4 TO 10/14 D
     Dates: start: 20110411, end: 20121010
  2. ADDITIONAL STUDY MEDICATION [Suspect]
     Indication: COLORECTAL CANCER METASTATIC
     Dosage: 680 MG/ 14 DAY
     Route: 042
     Dates: start: 20110408, end: 20121001
  3. ADDITIONAL STUDY MEDICATION [Suspect]
     Indication: COLORECTAL CANCER METASTATIC
     Dosage: 4080 MG / 14 D
     Route: 042
     Dates: start: 20110408, end: 20121003
  4. ADDITIONAL STUDY MEDICATION [Suspect]
     Indication: COLORECTAL CANCER METASTATIC
     Dosage: 680 MG/ 14 D
     Route: 042
     Dates: start: 20110408, end: 20121001
  5. ADDITIONAL STUDY MEDICATION [Suspect]
     Indication: COLORECTAL CANCER METASTATIC
     Dosage: UNK
  6. REPAGLINIDE [Concomitant]
     Indication: DIABETES MELLITUS
     Dosage: TOTAL DAILY DOSE 1 MG
     Route: 048
     Dates: start: 2007
  7. ALPRAZOLAM [Concomitant]
     Indication: ANXIETY
     Dosage: TOTAL DAILY DOSE 1 MG
     Route: 048
     Dates: start: 201104

REACTIONS (1)
  - Acute coronary syndrome [Recovered/Resolved]
